FAERS Safety Report 7557368-7 (Version None)
Quarter: 2011Q2

REPORT INFORMATION
  Report Type: 
  Country: None (occurrence: None)
  Receive Date: 20110620
  Receipt Date: 20110606
  Transmission Date: 20111010
  Serious: Yes (Other)
  Sender: FDA-Public Use
  Company Number: PHHY2011DE51329

PATIENT
  Sex: Female
  Weight: 82 kg

DRUGS (6)
  1. PACLITAXEL [Concomitant]
     Dosage: 175 MG, UNK
     Dates: start: 20100715
  2. LEVOTHYROXINE SODIUM [Concomitant]
     Dosage: 100 UG, / DAY
     Dates: start: 20100701
  3. AVASTIN [Concomitant]
     Dosage: 820 MG, UNK
     Dates: start: 20100715
  4. PANTOPRAZOLE [Concomitant]
     Dosage: 20 MG, DAILY
     Dates: start: 20100701
  5. ZOMETA [Suspect]
     Indication: BONE DISORDER
     Dosage: 4 MG/5ML  EVERY 4 WEEKS
     Route: 042
     Dates: start: 20100714
  6. DEXAMETHASONE [Concomitant]
     Dosage: 4 MG,DAY
     Dates: start: 20100701, end: 20100718

REACTIONS (3)
  - METASTASES TO LUNG [None]
  - GENERAL PHYSICAL HEALTH DETERIORATION [None]
  - FOOT FRACTURE [None]
